FAERS Safety Report 10367278 (Version 1)
Quarter: 2014Q3

REPORT INFORMATION
  Report Type: Spontaneous
  Country: FR (occurrence: FR)
  Receive Date: 20140807
  Receipt Date: 20140807
  Transmission Date: 20150326
  Serious: Yes (Hospitalization)
  Sender: FDA-Public Use
  Company Number: FR-009507513-1407FRA013766

PATIENT
  Age: 54 Year
  Sex: Female

DRUGS (1)
  1. SINGULAIR [Suspect]
     Active Substance: MONTELUKAST SODIUM
     Dosage: 1 DF, QD
     Route: 048
     Dates: start: 200308, end: 20040528

REACTIONS (2)
  - Polyneuropathy [Not Recovered/Not Resolved]
  - Eosinophilia [Not Recovered/Not Resolved]
